FAERS Safety Report 15404469 (Version 2)
Quarter: 2018Q4

REPORT INFORMATION
  Report Type: Report from Study
  Country: US (occurrence: US)
  Receive Date: 20180919
  Receipt Date: 20181109
  Transmission Date: 20190204
  Serious: Yes (Hospitalization, Other)
  Sender: FDA-Public Use
  Company Number: US-SHIRE-US201835470

PATIENT
  Age: 52 Year
  Sex: Female

DRUGS (3)
  1. GATTEX [Suspect]
     Active Substance: TEDUGLUTIDE\WATER
     Dosage: 2.6 MG, QOD
     Route: 065
     Dates: start: 20170620, end: 20180912
  2. GATTEX [Suspect]
     Active Substance: TEDUGLUTIDE\WATER
     Indication: SHORT-BOWEL SYNDROME
     Dosage: 2.6 MG, 1X/DAY:QD
     Route: 065
     Dates: start: 20170620, end: 20180912
  3. VANCOMYCIN [Concomitant]
     Active Substance: VANCOMYCIN
     Indication: PRODUCT USED FOR UNKNOWN INDICATION

REACTIONS (4)
  - Dehydration [Unknown]
  - Hypotension [Unknown]
  - Blood creatinine increased [Recovered/Resolved]
  - Nephropathy toxic [Unknown]

NARRATIVE: CASE EVENT DATE: 20180910
